FAERS Safety Report 16725108 (Version 1)
Quarter: 2019Q3

REPORT INFORMATION
  Report Type: Report from Study
  Country: None (occurrence: CA)
  Receive Date: 20190821
  Receipt Date: 20190821
  Transmission Date: 20191005
  Serious: Yes (Other)
  Sender: FDA-Public Use
  Company Number: CA-ABBVIE-19K-028-2869110-00

PATIENT
  Sex: Male

DRUGS (2)
  1. HUMIRA [Suspect]
     Active Substance: ADALIMUMAB
     Route: 058
     Dates: start: 20190719
  2. HUMIRA [Suspect]
     Active Substance: ADALIMUMAB
     Indication: HIDRADENITIS
     Route: 058
     Dates: start: 20190426, end: 201906

REACTIONS (7)
  - Oral infection [Recovered/Resolved]
  - Scar [Unknown]
  - Endodontic procedure [Unknown]
  - Neck mass [Unknown]
  - Rash [Unknown]
  - Oropharyngeal pain [Unknown]
  - Inflammation [Unknown]

NARRATIVE: CASE EVENT DATE: 2019
